FAERS Safety Report 8579892-0 (Version None)
Quarter: 2012Q3

REPORT INFORMATION
  Report Type: 
  Country: None (occurrence: None)
  Receive Date: 20120808
  Receipt Date: 20120730
  Transmission Date: 20120928
  Serious: No
  Sender: FDA-Public Use
  Company Number: US-ASTRAZENECA-2012SE54020

PATIENT
  Age: 61 Year
  Sex: Female
  Weight: 83.9 kg

DRUGS (5)
  1. ENTOCORT EC [Suspect]
     Indication: COLITIS
     Route: 048
     Dates: start: 20120706
  2. SINGULAIR [Concomitant]
     Indication: HYPERSENSITIVITY
  3. SINGULAIR [Concomitant]
     Indication: ASTHMA
  4. GENERIC ZYRTEC [Concomitant]
  5. LEVOTHYROXINE SODIUM [Concomitant]
     Indication: THYROID DISORDER

REACTIONS (3)
  - WEIGHT INCREASED [None]
  - OFF LABEL USE [None]
  - DIZZINESS [None]
